FAERS Safety Report 8303539-1 (Version None)
Quarter: 2012Q2

REPORT INFORMATION
  Report Type: 
  Country: None (occurrence: None)
  Receive Date: 20120423
  Receipt Date: 20120418
  Transmission Date: 20120825
  Serious: Yes (Other)
  Sender: FDA-Public Use
  Company Number: US-PFIZER INC-2012096976

PATIENT
  Sex: Female
  Weight: 68.027 kg

DRUGS (3)
  1. CELEBREX [Suspect]
     Indication: MYALGIA
  2. CELEBREX [Suspect]
     Indication: ARTHRITIS
     Dosage: UNK
     Route: 048
  3. CIPROFLOXACIN HCL [Suspect]
     Indication: CYSTITIS INTERSTITIAL
     Dosage: UNK

REACTIONS (3)
  - CYSTITIS INTERSTITIAL [None]
  - DRUG INEFFECTIVE [None]
  - BLOOD PRESSURE ABNORMAL [None]
